FAERS Safety Report 4297316-9 (Version None)
Quarter: 2004Q1

REPORT INFORMATION
  Report Type: 
  Country: None (occurrence: None)
  Receive Date: 20040213
  Receipt Date: 20040204
  Transmission Date: 20041129
  Serious: Yes (Life-Threatening)
  Sender: FDA-Public Use
  Company Number: 2004197848FR

PATIENT
  Age: 55 Year
  Sex: Male
  Weight: 79 kg

DRUGS (9)
  1. ALDACTONE [Suspect]
     Dosage: 1 DF, UNK, ORAL
     Route: 048
  2. STAGID (METFORMIN EMBONATE) [Suspect]
     Dosage: 2100 MG, UNK, ORAL
     Route: 048
  3. DAONIL(GLIBENCLAMIDE)5MG [Suspect]
     Dosage: 15 MG,DAILY, ORAL
     Route: 048
  4. LASIX [Suspect]
     Dosage: 40 MG, DAILY, ORAL
     Route: 048
  5. GLUCOR(ACARBOSE)50 MG [Suspect]
     Dosage: 150 MG, DAILY, ORAL
     Route: 048
  6. AOTAL(ACAMPROSATE) [Concomitant]
  7. EQUANIL [Concomitant]
  8. PROZAC [Concomitant]
  9. HAVLANE(LOPRAZOLAM MESILATE)TABLET [Concomitant]

REACTIONS (4)
  - HEPATIC CIRRHOSIS [None]
  - HEPATOCELLULAR DAMAGE [None]
  - LABORATORY TEST ABNORMAL [None]
  - LACTIC ACIDOSIS [None]
